FAERS Safety Report 19755833 (Version 1)
Quarter: 2021Q3

REPORT INFORMATION
  Report Type: Spontaneous
  Country: CN (occurrence: CN)
  Receive Date: 20210827
  Receipt Date: 20210827
  Transmission Date: 20211014
  Serious: Yes (Other)
  Sender: FDA-Public Use
  Company Number: CN-PFIZER INC-202101050445

PATIENT
  Age: 35 Year
  Sex: Female
  Weight: 72 kg

DRUGS (3)
  1. SODIUM CHLORIDE. [Concomitant]
     Active Substance: SODIUM CHLORIDE
     Indication: VEHICLE SOLUTION USE
     Dosage: 100.000 ML, 3X/DAY
     Route: 041
     Dates: start: 20210806, end: 20210806
  2. TAZOCIN [Suspect]
     Active Substance: PIPERACILLIN SODIUM\TAZOBACTAM SODIUM
     Indication: POST PROCEDURAL INFECTION
  3. TAZOCIN [Suspect]
     Active Substance: PIPERACILLIN SODIUM\TAZOBACTAM SODIUM
     Indication: ANTI-INFECTIVE THERAPY
     Dosage: 4.5 G, 3X/DAY, (EVERY 8 HOURS(Q8H))
     Route: 041
     Dates: start: 20210806, end: 20210806

REACTIONS (21)
  - Hypoaesthesia [Recovering/Resolving]
  - Dermatitis bullous [Unknown]
  - Pruritus [Unknown]
  - Injection site reaction [Unknown]
  - Headache [Unknown]
  - Pyrexia [Unknown]
  - Chills [Unknown]
  - Dermatitis exfoliative [Unknown]
  - Purpura [Unknown]
  - Erythema multiforme [Unknown]
  - Toxic epidermal necrolysis [Unknown]
  - Stevens-Johnson syndrome [Unknown]
  - Acute generalised exanthematous pustulosis [Unknown]
  - Urticaria [Unknown]
  - Rash maculo-papular [Unknown]
  - Cold sweat [Recovering/Resolving]
  - Drug hypersensitivity [Recovering/Resolving]
  - Flushing [Recovering/Resolving]
  - Drug reaction with eosinophilia and systemic symptoms [Unknown]
  - Skin disorder [Unknown]
  - Rash [Unknown]

NARRATIVE: CASE EVENT DATE: 20210806
